FAERS Safety Report 8457993-5 (Version None)
Quarter: 2012Q2

REPORT INFORMATION
  Report Type: 
  Country: None (occurrence: None)
  Receive Date: 20120615
  Receipt Date: 20120613
  Transmission Date: 20120825
  Serious: Yes (Hospitalization)
  Sender: FDA-Public Use
  Company Number: ADR-2009-7387

PATIENT
  Sex: Female

DRUGS (1)
  1. LIORESAL [Suspect]
     Indication: MUSCLE SPASTICITY
     Dosage: 719.7 MCG, DAILY, INTRA
     Route: 037

REACTIONS (5)
  - HALLUCINATION [None]
  - MUSCLE SPASTICITY [None]
  - MEDICAL DEVICE COMPLICATION [None]
  - COGNITIVE DISORDER [None]
  - DELIRIUM [None]
